FAERS Safety Report 6113700-2 (Version None)
Quarter: 2009Q1

REPORT INFORMATION
  Report Type: 
  Country: None (occurrence: None)
  Receive Date: 20090312
  Receipt Date: 20090305
  Transmission Date: 20090719
  Serious: Yes (Other)
  Sender: FDA-Public Use
  Company Number: US-ELI_LILLY_AND_COMPANY-US200903001293

PATIENT
  Sex: Female

DRUGS (3)
  1. FORTEO [Suspect]
     Indication: OSTEOPENIA
     Dates: start: 20080301
  2. CALTRATE [Concomitant]
     Dosage: 1200 MG, DAILY (1/D)
  3. CENTRUM [Concomitant]
     Dosage: 220 MG, UNK

REACTIONS (5)
  - BREAST CANCER [None]
  - INJECTION SITE HAEMATOMA [None]
  - INJECTION SITE PAIN [None]
  - SKIN DISORDER [None]
  - VITAMIN D DEFICIENCY [None]
